FAERS Safety Report 23213044 (Version 1)
Quarter: 2023Q4

REPORT INFORMATION
  Report Type: Spontaneous
  Country: CZ (occurrence: CZ)
  Receive Date: 20231121
  Receipt Date: 20231121
  Transmission Date: 20240110
  Serious: Yes (Hospitalization)
  Sender: FDA-Public Use
  Company Number: None

PATIENT
  Age: 69 Year
  Sex: Male
  Weight: 85 kg

DRUGS (7)
  1. LENALIDOMIDE [Suspect]
     Active Substance: LENALIDOMIDE
     Indication: Marginal zone lymphoma
     Dosage: 15 MG
     Dates: start: 20221025
  2. LENALIDOMIDE [Suspect]
     Active Substance: LENALIDOMIDE
     Indication: Follicular lymphoma
     Dosage: 20 MILLIGRAM DAILY; 20 MG, QD (DAYS 1 TO 21 CYCLES OF  1 TO 12)
     Dates: start: 20220802, end: 20220807
  3. LENALIDOMIDE [Suspect]
     Active Substance: LENALIDOMIDE
     Dosage: 20 MILLIGRAM DAILY; 20 MG, QD DAYS 1 TO 21 CYCLES OF  1 TO 12)
     Dates: start: 20220808
  4. TAFASITAMAB [Suspect]
     Active Substance: TAFASITAMAB
     Indication: Follicular lymphoma
     Dosage: 12 MG/KG (1020MG) (DAYS 1, 8, 15, 22 OF CYCLES 1 TO 3 THEN DAYS 1 AND 15 OF CYCLES 4 TO 12)
     Dates: start: 20221018
  5. TAFASITAMAB [Suspect]
     Active Substance: TAFASITAMAB
     Indication: Marginal zone lymphoma
     Dosage: 12 MG/KG (1020MG) (DAYS 1, 8, 15, 22 OF CYCLES 1 TO 3 THEN DAYS 1 AND 15 OF CYCLES 4 TO 12)
     Dates: start: 20220802, end: 20220809
  6. RITUXIMAB [Suspect]
     Active Substance: RITUXIMAB
     Indication: Follicular lymphoma stage III
     Dosage: 375 MG/M2 (787.5 MG), (DAYS 1, 8, 15, 22 OF CYCLE 1 THEN DAY OF CYCLES 2 TO 5)
     Dates: start: 20220802, end: 20220809
  7. RITUXIMAB [Suspect]
     Active Substance: RITUXIMAB
     Indication: Marginal zone lymphoma
     Dosage: 375 MG/M2
     Dates: start: 20221025

REACTIONS (1)
  - Infection [Not Recovered/Not Resolved]

NARRATIVE: CASE EVENT DATE: 20220809
